FAERS Safety Report 4807447-X (Version None)
Quarter: 2005Q4

REPORT INFORMATION
  Report Type: 
  Country: None (occurrence: None)
  Receive Date: 20051020
  Receipt Date: 20051012
  Transmission Date: 20060501
  Serious: Yes (Hospitalization)
  Sender: FDA-Public Use
  Company Number: 2005-09-0926

PATIENT
  Age: 46 Year
  Sex: Female
  Weight: 63.9572 kg

DRUGS (25)
  1. PEG-INTRON (PEGINTERFERON ALFA-2B) INJECTABLE POWDER [Suspect]
     Indication: HEPATITIS C
     Dosage: 96 MCG QWK SUBCUTANEOUS
     Route: 058
     Dates: start: 20050503, end: 20050915
  2. REBETOL [Suspect]
     Indication: HEPATITIS C
     Dosage: 1000 MG QD ORAL
     Route: 048
     Dates: start: 20050503, end: 20050915
  3. PHENERGAN [Suspect]
     Indication: NAUSEA
     Dosage: 25 MG Q6H PRN ORAL
     Route: 048
     Dates: start: 20050503, end: 20050913
  4. PROZAC ORALS [Suspect]
     Indication: DEPRESSION
     Dosage: 40 MG QHS ORAL
     Route: 048
     Dates: start: 20050503
  5. RESTORIL ORALS [Suspect]
     Indication: INSOMNIA
     Dosage: 30 MG QHS ORAL
     Route: 048
     Dates: start: 20050503, end: 20050913
  6. METHADONE HYDROCHLORIDE TABLETS [Suspect]
     Indication: INTERVERTEBRAL DISC DEGENERATION
     Dosage: 10 MG Q12H ORAL
     Route: 048
     Dates: start: 20050503
  7. METHADONE HYDROCHLORIDE TABLETS [Suspect]
     Indication: PAIN
     Dosage: 10 MG Q12H ORAL
     Route: 048
     Dates: start: 20050503
  8. OMPERAZOLE CAPSULES [Concomitant]
  9. ENALAPRIL MALEATE [Concomitant]
  10. DICYCLOMINE HYDROCHLORIDE CAPSULES [Concomitant]
  11. ERGOTAMINE TABLETS [Concomitant]
  12. AMLODIPINE TABLETS [Concomitant]
  13. TRAMADOL HYDROCHLORIDE TABLET [Concomitant]
  14. PROPOXYPHENE HYDROCHLORIDE CAPSULES [Concomitant]
  15. MORPHINE SULFATE TABLETS [Concomitant]
  16. RANITIDINE [Concomitant]
  17. TRIAMCINOLONE CREAM 0.1% [Concomitant]
  18. MEGESTROL ACETATE [Concomitant]
  19. POTASSIUM CHLORIDE [Concomitant]
  20. CEPHALEXIN [Concomitant]
  21. PROMETHAZINE SUPPOSITORIES [Concomitant]
  22. TRAZODONE HCL [Concomitant]
  23. DOXEPIN CAPSULES [Concomitant]
  24. DIAZEPAM [Concomitant]
  25. NORTRIPTYLINE HCL [Concomitant]

REACTIONS (13)
  - ARTHRALGIA [None]
  - BLOOD UREA DECREASED [None]
  - CHEST PAIN [None]
  - DEHYDRATION [None]
  - DYSPNOEA [None]
  - DYSTONIA [None]
  - HEART RATE INCREASED [None]
  - HYPERTENSION [None]
  - HYPOKALAEMIA [None]
  - MUSCLE SPASMS [None]
  - NAUSEA [None]
  - RESPIRATORY RATE INCREASED [None]
  - VOMITING [None]
